FAERS Safety Report 8530813-6 (Version None)
Quarter: 2012Q3

REPORT INFORMATION
  Report Type: 
  Country: None (occurrence: None)
  Receive Date: 20120723
  Receipt Date: 20120716
  Transmission Date: 20120928
  Serious: No
  Sender: FDA-Public Use
  Company Number: US-PFIZER INC-2012170900

PATIENT
  Sex: Female

DRUGS (2)
  1. QUINAPRIL HCL [Suspect]
     Dosage: UNK
  2. AMLODIPINE AND ATORVASTATIN [Suspect]
     Dosage: UNK

REACTIONS (5)
  - HYPERTENSION [None]
  - BLOOD CHOLESTEROL INCREASED [None]
  - MUSCLE TWITCHING [None]
  - DIZZINESS [None]
  - NERVOUSNESS [None]
